FAERS Safety Report 7940917-4 (Version None)
Quarter: 2011Q4

REPORT INFORMATION
  Report Type: 
  Country: None (occurrence: None)
  Receive Date: 20111128
  Receipt Date: 20111117
  Transmission Date: 20120403
  Serious: Yes (Other)
  Sender: FDA-Public Use
  Company Number: US-JNJFOC-20111108181

PATIENT
  Sex: Female
  Weight: 72.58 kg

DRUGS (3)
  1. LEVAQUIN [Suspect]
     Indication: PNEUMONIA
     Route: 048
     Dates: start: 20110801
  2. REMICADE [Suspect]
     Indication: UVEITIS
     Route: 042
     Dates: start: 20100101, end: 20111018
  3. REMICADE [Suspect]
     Indication: JUVENILE ARTHRITIS
     Route: 042
     Dates: start: 20100101, end: 20111018

REACTIONS (4)
  - PSORIASIS [None]
  - PSORIATIC ARTHROPATHY [None]
  - PNEUMONIA [None]
  - DRUG INEFFECTIVE [None]
